FAERS Safety Report 9242309 (Version 1)
Quarter: 2013Q2

REPORT INFORMATION
  Report Type: Report from Study
  Country: CA (occurrence: CA)
  Receive Date: 20130419
  Receipt Date: 20130419
  Transmission Date: 20140414
  Serious: Yes (Hospitalization)
  Sender: FDA-Public Use
  Company Number: CA-JNJFOC-20130408208

PATIENT
  Sex: Female
  Weight: 62 kg

DRUGS (7)
  1. REMICADE [Suspect]
     Indication: CROHN^S DISEASE
     Route: 042
     Dates: start: 20120306
  2. CELEXA [Concomitant]
     Route: 065
  3. ESTROGEL [Concomitant]
     Dosage: 2 PUMPS ONCE DAILY
     Route: 065
  4. PREMARIN [Concomitant]
     Route: 065
  5. AERIUS [Concomitant]
     Route: 065
  6. NAPROXEN [Concomitant]
     Route: 065
  7. VITAMIN D [Concomitant]
     Route: 065

REACTIONS (1)
  - Fistula [Recovered/Resolved]
